FAERS Safety Report 7518928-2 (Version None)
Quarter: 2011Q2

REPORT INFORMATION
  Report Type: 
  Country: None (occurrence: None)
  Receive Date: 20110523
  Receipt Date: 20110509
  Transmission Date: 20111010
  Serious: Yes (Hospitalization)
  Sender: FDA-Public Use
  Company Number: LIDO20110002

PATIENT
  Age: 54 Year
  Sex: Female

DRUGS (3)
  1. TRIAMCINOLONE [Suspect]
     Dosage: 15 MG, ONCE, EPIDURAL
     Route: 008
  2. ISOVIST (IOTROLAN) [Suspect]
     Indication: CERVICOBRACHIAL SYNDROME
     Dosage: 1 ML, 2 IN 1 D, EPIDURAL
     Route: 008
  3. LIDOCAINE HYDROCHLORIDE [Suspect]
     Indication: CERVICOBRACHIAL SYNDROME
     Dosage: 0.5 ML, ONCE, EPIDURAL
     Route: 008

REACTIONS (1)
  - POSTERIOR REVERSIBLE ENCEPHALOPATHY SYNDROME [None]
